FAERS Safety Report 20450639 (Version 1)
Quarter: 2022Q1

REPORT INFORMATION
  Report Type: Spontaneous
  Country: US (occurrence: None)
  Receive Date: 20220209
  Receipt Date: 20220209
  Transmission Date: 20220423
  Serious: Yes (Other)
  Sender: FDA-Public Use
  Company Number: None

PATIENT
  Age: 56 Year
  Sex: Female
  Weight: 72 kg

DRUGS (1)
  1. LAMOTRIGINE [Suspect]
     Active Substance: LAMOTRIGINE
     Indication: Affective disorder
     Dosage: OTHER QUANTITY : 3 TABLET(S);?FREQUENCY : AT BEDTIME;?
     Route: 048
     Dates: start: 20210428, end: 20220208

REACTIONS (8)
  - Pruritus [None]
  - Rash [None]
  - Skin ulcer [None]
  - Arthralgia [None]
  - Contusion [None]
  - Sleep disorder [None]
  - Ocular hyperaemia [None]
  - Lymphadenopathy [None]

NARRATIVE: CASE EVENT DATE: 20220120
